FAERS Safety Report 4685886-8 (Version None)
Quarter: 2005Q2

REPORT INFORMATION
  Report Type: 
  Country: None (occurrence: None)
  Receive Date: 20050609
  Receipt Date: 20050602
  Transmission Date: 20051028
  Serious: Yes (Other)
  Sender: FDA-Public Use
  Company Number: PHEH2005US06208

PATIENT
  Age: 58 Year
  Sex: Female

DRUGS (1)
  1. AREDIA [Suspect]
     Indication: BREAST CANCER
     Dosage: 90 MG, QMO
     Dates: start: 20000607, end: 20050422

REACTIONS (12)
  - ASEPTIC NECROSIS BONE [None]
  - BLOOD ALKALINE PHOSPHATASE INCREASED [None]
  - BLOOD CREATININE INCREASED [None]
  - BONE DISORDER [None]
  - CONSTIPATION [None]
  - COUGH [None]
  - CREPITATIONS [None]
  - DENTAL EXAMINATION ABNORMAL [None]
  - ORAL DISCOMFORT [None]
  - ORAL INFECTION [None]
  - PURULENCE [None]
  - VAGINAL MYCOSIS [None]
